FAERS Safety Report 7472438-X (Version None)
Quarter: 2011Q1

REPORT INFORMATION
  Report Type: 
  Country: None (occurrence: None)
  Receive Date: 20110302
  Receipt Date: 20100712
  Transmission Date: 20110831
  Serious: Yes (Death)
  Sender: FDA-Public Use
  Company Number: 163-21880-10061017

PATIENT
  Age: 78 Year
  Sex: Female

DRUGS (3)
  1. LORTAB (VICODIN) [Concomitant]
  2. MORPHINE [Concomitant]
  3. REVLIMID [Suspect]
     Indication: MULTIPLE MYELOMA
     Dosage: 25 MG, 1 IN 1 D, PO
     Route: 048
     Dates: start: 20100126, end: 20100608

REACTIONS (2)
  - RESPIRATORY FAILURE [None]
  - FALL [None]
